FAERS Safety Report 8472314-X (Version None)
Quarter: 2012Q2

REPORT INFORMATION
  Report Type: 
  Country: None (occurrence: None)
  Receive Date: 20120627
  Receipt Date: 20120622
  Transmission Date: 20120825
  Serious: Yes (Other)
  Sender: FDA-Public Use
  Company Number: US-AMGEN-USASP2011024990

PATIENT
  Sex: Female

DRUGS (12)
  1. ACTOS [Concomitant]
     Dosage: UNK
  2. IRON [Concomitant]
     Dosage: UNK
  3. SENSIPAR [Suspect]
     Indication: PARATHYROID TUMOUR BENIGN
     Dosage: 4 MG, BID
     Route: 048
     Dates: start: 20101201
  4. SENSIPAR [Suspect]
     Dosage: 360 MG, BID
     Dates: start: 20080101
  5. SEROQUEL [Concomitant]
     Dosage: UNK
  6. COLACE [Concomitant]
     Dosage: UNK
  7. NEPHROVITE [Concomitant]
     Dosage: UNK
  8. REMERON [Concomitant]
     Dosage: UNK
  9. ASPIRIN [Concomitant]
     Dosage: UNK
  10. CALCITON                           /00371903/ [Concomitant]
     Dosage: UNK
  11. FOSAMAX [Concomitant]
     Dosage: UNK
  12. TYLENOL (CAPLET) [Concomitant]
     Dosage: UNK

REACTIONS (1)
  - HYPERCALCAEMIA [None]
